FAERS Safety Report 21878798 (Version 5)
Quarter: 2023Q2

REPORT INFORMATION
  Report Type: Spontaneous
  Country: US (occurrence: US)
  Receive Date: 20230118
  Receipt Date: 20230403
  Transmission Date: 20230722
  Serious: Yes (Death, Hospitalization)
  Sender: FDA-Public Use
  Company Number: US-PFIZER INC-PV202300010828

PATIENT
  Age: 79 Year
  Sex: Female

DRUGS (1)
  1. LORBRENA [Suspect]
     Active Substance: LORLATINIB
     Indication: Lung carcinoma cell type unspecified stage 0
     Dosage: 100 MG

REACTIONS (6)
  - Neoplasm progression [Fatal]
  - Aggression [Unknown]
  - Screaming [Unknown]
  - Fall [Unknown]
  - Dyspnoea [Unknown]
  - Extra dose administered [Unknown]
